FAERS Safety Report 16823295 (Version 7)
Quarter: 2019Q4

REPORT INFORMATION
  Report Type: Report from Study
  Country: US (occurrence: US)
  Receive Date: 20190918
  Receipt Date: 20191126
  Transmission Date: 20200122
  Serious: Yes (Hospitalization, Disabling, Other)
  Sender: FDA-Public Use
  Company Number: US-BRISTOL-MYERS SQUIBB COMPANY-BMS-2019-089316

PATIENT
  Age: 70 Year
  Sex: Male
  Weight: 92 kg

DRUGS (6)
  1. MIRABEGRON [Concomitant]
     Active Substance: MIRABEGRON
     Indication: PRODUCT USED FOR UNKNOWN INDICATION
     Dosage: 25 MILLIGRAM, QOD
     Route: 065
     Dates: start: 20190206
  2. NIVOLUMAB [Suspect]
     Active Substance: NIVOLUMAB
     Indication: BLADDER CANCER
     Dosage: 480 MILLIGRAM
     Route: 042
     Dates: start: 20190207
  3. VITAMIN D3 [Concomitant]
     Active Substance: CHOLECALCIFEROL
     Indication: PRODUCT USED FOR UNKNOWN INDICATION
     Dosage: 5000 UNITS NOS, EVERY OTHER DAY
     Route: 048
     Dates: start: 20170412
  4. BCG VACCINE [Suspect]
     Active Substance: BCG VACCINE
     Indication: BLADDER CANCER
     Dosage: 50 MILLIGRAM
     Route: 065
     Dates: start: 20190207
  5. MULTIVITAMIN + MINERAL [Concomitant]
     Active Substance: MINERALS\VITAMINS
     Indication: PRODUCT USED FOR UNKNOWN INDICATION
     Dosage: 1 UNITS NOS, EVERY OTHER DAY
     Route: 048
     Dates: start: 20170412
  6. ZOLPIDEM [Concomitant]
     Active Substance: ZOLPIDEM TARTRATE
     Indication: PRODUCT USED FOR UNKNOWN INDICATION
     Dosage: 1 UNIT NOS, EVERY OTHER DAY
     Route: 048
     Dates: start: 20180412

REACTIONS (1)
  - Adrenal insufficiency [Not Recovered/Not Resolved]

NARRATIVE: CASE EVENT DATE: 20190909
